FAERS Safety Report 9514610 (Version 1)
Quarter: 2013Q1

REPORT INFORMATION
  Report Type: Spontaneous
  Country: US (occurrence: None)
  Receive Date: 20130305
  Receipt Date: 20130305
  Transmission Date: 20140127
  Serious: Yes (Other)
  Sender: FDA-Public Use
  Company Number: 163-21880-12112240

PATIENT
  Age: 54 Year
  Sex: Female

DRUGS (5)
  1. REVLIMID (LENALIDOMIDE) (CAPSULES) [Suspect]
     Dosage: 10 MG , 1 IN 1 D, PO
     Route: 048
     Dates: start: 20090429
  2. ASPIRIN (ACTYLSALICYLIC ACID) (TABLETS) [Concomitant]
  3. CALCIUM (CALCCIUM) [Concomitant]
  4. IRON (IRON) [Concomitant]
  5. WOMEN^S DAILY VITAMINS (VITAMINS) [Concomitant]

REACTIONS (1)
  - Spinal fracture [None]
